FAERS Safety Report 21133061 (Version 1)
Quarter: 2022Q3

REPORT INFORMATION
  Report Type: Spontaneous
  Country: US (occurrence: US)
  Receive Date: 20220726
  Receipt Date: 20220726
  Transmission Date: 20221027
  Serious: No
  Sender: FDA-Public Use
  Company Number: US-NOVARTISTESTPH-NVSC2022US168052

PATIENT
  Age: 67 Year
  Sex: Female

DRUGS (4)
  1. RECLAST [Suspect]
     Active Substance: ZOLEDRONIC ACID
     Indication: Product used for unknown indication
     Dosage: 1 DOSAGE FORM, Q12MO
     Route: 041
  2. RECLAST [Suspect]
     Active Substance: ZOLEDRONIC ACID
     Dosage: UNK (LAST INFUSION)
     Route: 041
     Dates: start: 20220720
  3. MONTELUKAST SODIUM [Concomitant]
     Active Substance: MONTELUKAST SODIUM
     Indication: Product used for unknown indication
     Route: 065
  4. COMBIGAN [Concomitant]
     Active Substance: BRIMONIDINE TARTRATE\TIMOLOL MALEATE
     Indication: Product used for unknown indication
     Route: 065

REACTIONS (2)
  - Rhinorrhoea [Unknown]
  - Headache [Unknown]

NARRATIVE: CASE EVENT DATE: 20220721
